FAERS Safety Report 10316916 (Version 2)
Quarter: 2015Q1

REPORT INFORMATION
  Report Type: Other
  Country: US (occurrence: US)
  Receive Date: 20140719
  Receipt Date: 20150110
  Transmission Date: 20150720
  Serious: Yes (Hospitalization, Other)
  Sender: FDA-Public Use
  Company Number: US-GSKPPD-2014GSK013627

PATIENT
  Age: 73 Year
  Sex: Male

DRUGS (8)
  1. COUMADIN [Concomitant]
     Active Substance: WARFARIN SODIUM
     Dosage: EXCEPT FOR MONDAY TO FRIDAY
  2. AVANDIA [Suspect]
     Active Substance: ROSIGLITAZONE MALEATE
     Indication: DIABETES MELLITUS
     Dosage: DATES OF AVANDIA USE COULD NOT BE CONFIRMED IN RECORDS REVIEWED.
     Route: 048
  3. NIFEDICAL XL [Concomitant]
     Active Substance: NIFEDIPINE
  4. COZAAR [Concomitant]
     Active Substance: LOSARTAN POTASSIUM
  5. AMIODARONE [Concomitant]
     Active Substance: AMIODARONE
     Dosage: FOR 7 DAYS.
     Route: 048
  6. COUMADIN [Concomitant]
     Active Substance: WARFARIN SODIUM
     Dosage: EVERY MONDAY TO FRIDAY
  7. AMIODARONE [Concomitant]
     Active Substance: AMIODARONE
     Route: 048
  8. ASPIRIN. [Concomitant]
     Active Substance: ASPIRIN

REACTIONS (1)
  - Supraventricular tachycardia [Recovered/Resolved]

NARRATIVE: CASE EVENT DATE: 20081120
